FAERS Safety Report 6406051-X (Version None)
Quarter: 2009Q4

REPORT INFORMATION
  Report Type: 
  Country: None (occurrence: None)
  Receive Date: 20091016
  Receipt Date: 20091016
  Transmission Date: 20100525
  Serious: Yes (Life-Threatening, Other)
  Sender: FDA-Public Use
  Company Number: None

PATIENT
  Age: 21 Year
  Sex: Male
  Weight: 68.4932 kg

DRUGS (1)
  1. CLONAZEPAM [Suspect]
     Indication: PANIC ATTACK
     Dosage: .5 MG TWICE DAILY PO
     Route: 048
     Dates: start: 20080829, end: 20090212

REACTIONS (33)
  - ARTHROPATHY [None]
  - COGNITIVE DISORDER [None]
  - DEPERSONALISATION [None]
  - DEPRESSION [None]
  - DEREALISATION [None]
  - DRUG DEPENDENCE [None]
  - DRUG WITHDRAWAL SYNDROME [None]
  - GASTROINTESTINAL DISORDER [None]
  - HALLUCINATION [None]
  - HALLUCINATION, AUDITORY [None]
  - HYPERACUSIS [None]
  - HYPERTENSION [None]
  - IMPAIRED WORK ABILITY [None]
  - INSOMNIA [None]
  - INTENTIONAL SELF-INJURY [None]
  - MIGRAINE [None]
  - MUSCLE SPASMS [None]
  - MUSCLE TWITCHING [None]
  - NAUSEA [None]
  - OBSESSIVE THOUGHTS [None]
  - PANIC DISORDER [None]
  - PARAESTHESIA [None]
  - PARANOIA [None]
  - PHOTOPHOBIA [None]
  - POLLAKIURIA [None]
  - SOCIAL PROBLEM [None]
  - SUICIDAL IDEATION [None]
  - THINKING ABNORMAL [None]
  - TINNITUS [None]
  - TREMOR [None]
  - VIOLENCE-RELATED SYMPTOM [None]
  - VISION BLURRED [None]
  - WEIGHT DECREASED [None]
